FAERS Safety Report 8890856 (Version 1)
Quarter: 2012Q4

REPORT INFORMATION
  Report Type: 
  Country: CH (occurrence: CH)
  Receive Date: 20121106
  Receipt Date: 20121106
  Transmission Date: 20130627
  Serious: Yes (Hospitalization, Disabling)
  Sender: FDA-Public Use
  Company Number: CH-ELI_LILLY_AND_COMPANY-CH201210009565

PATIENT
  Age: 74 Year
  Sex: Female

DRUGS (14)
  1. CYMBALTA [Suspect]
     Dosage: 60 mg, qd
     Route: 048
     Dates: start: 20100825, end: 20120825
  2. INEGY [Concomitant]
     Dosage: 10 mg, UNK
     Route: 048
     Dates: end: 20120828
  3. ZYVOXID [Concomitant]
     Dosage: 600 mg, UNK
     Route: 048
     Dates: start: 20111101, end: 20120101
  4. MST CONTINUS [Concomitant]
     Dosage: 30 mg, tid
     Route: 048
     Dates: start: 20111101, end: 20120825
  5. LIPANTHYL [Concomitant]
     Dosage: 200 mg, qd
     Route: 048
     Dates: end: 20120828
  6. VANCOMYCIN [Concomitant]
     Dosage: 500 mg, qd
     Route: 040
     Dates: start: 20111101, end: 20120101
  7. TARGOCID [Concomitant]
     Dosage: 200 mg, qd
     Route: 048
     Dates: start: 20111101, end: 20120101
  8. ASPIRIN [Concomitant]
     Dosage: 100 mg, qd
     Route: 048
  9. ZOLPIDEM [Concomitant]
     Dosage: 10 mg, qd
     Route: 048
     Dates: start: 20120101
  10. SERETIDE [Concomitant]
     Dosage: 500mg/50mg, bid
     Dates: start: 20080101
  11. SPIRIVA [Concomitant]
     Dosage: 18 mg, qd
     Dates: start: 20080101
  12. MYCOSTATIN [Concomitant]
     Dosage: 100000 IU, prn
     Route: 048
     Dates: start: 20110901
  13. PANTOPRAZOL [Concomitant]
     Dosage: 20 mg, qd
     Route: 048
     Dates: start: 20100901
  14. COMILORID [Concomitant]
     Dosage: 50 mg, qd
     Route: 048

REACTIONS (3)
  - Polyneuropathy [Not Recovered/Not Resolved]
  - Bronchopneumonia [Unknown]
  - Pulmonary sepsis [Unknown]
